FAERS Safety Report 24850460 (Version 1)
Quarter: 2025Q1

REPORT INFORMATION
  Report Type: Spontaneous
  Country: DE (occurrence: DE)
  Receive Date: 20250116
  Receipt Date: 20250116
  Transmission Date: 20250408
  Serious: Yes (Death, Other)
  Sender: TEVA
  Company Number: None

PATIENT
  Sex: Female

DRUGS (3)
  1. ESCITALOPRAM [Suspect]
     Active Substance: ESCITALOPRAM OXALATE
     Indication: Product used for unknown indication
     Dosage: 1X DAILY, ESCITALOPRAM ABZ
     Route: 065
  2. CIPROFLOXACIN [Suspect]
     Active Substance: CIPROFLOXACIN
     Indication: Gastric ulcer surgery
     Dosage: 500MG TWICE DAILY
     Route: 048
     Dates: start: 20240808
  3. METRONIDAZOLE [Concomitant]
     Active Substance: METRONIDAZOLE
     Indication: Product used for unknown indication
     Dosage: 400MG 3X DAILY
     Route: 048

REACTIONS (9)
  - Completed suicide [Fatal]
  - Depression [Unknown]
  - Depression [Unknown]
  - Thinking abnormal [Unknown]
  - Taste disorder [Unknown]
  - Vomiting [Unknown]
  - Parosmia [Unknown]
  - Abdominal pain upper [Unknown]
  - Nausea [Unknown]

NARRATIVE: CASE EVENT DATE: 20240101
